FAERS Safety Report 15724793 (Version 1)
Quarter: 2018Q4

REPORT INFORMATION
  Report Type: Spontaneous
  Country: CA (occurrence: CA)
  Receive Date: 20181214
  Receipt Date: 20181214
  Transmission Date: 20190205
  Serious: Yes (Other)
  Sender: FDA-Public Use
  Company Number: CA-TEVA-2018-CA-986555

PATIENT
  Sex: Male

DRUGS (10)
  1. PREDNISONE. [Suspect]
     Active Substance: PREDNISONE
  2. VITAMIN D [Concomitant]
     Active Substance: CHOLECALCIFEROL
  3. ENTYVIO [Suspect]
     Active Substance: VEDOLIZUMAB
     Indication: COLITIS ULCERATIVE
     Dosage: EVERY 8 WEEKS
     Dates: start: 201804
  4. PREDNISONE. [Suspect]
     Active Substance: PREDNISONE
  5. PREDNISONE. [Suspect]
     Active Substance: PREDNISONE
  6. IMURAN [Concomitant]
     Active Substance: AZATHIOPRINE
     Dates: start: 2016
  7. OXAZEPAM. [Concomitant]
     Active Substance: OXAZEPAM
  8. PREDNISONE. [Suspect]
     Active Substance: PREDNISONE
  9. CALCIUM [Concomitant]
     Active Substance: CALCIUM
  10. SEROQUEL [Concomitant]
     Active Substance: QUETIAPINE FUMARATE
     Dosage: AT BEDTIME

REACTIONS (13)
  - Paraesthesia [Unknown]
  - Drug ineffective [Unknown]
  - Feeling abnormal [Unknown]
  - Diarrhoea [Unknown]
  - Tremor [Unknown]
  - Abdominal pain [Unknown]
  - Bowel movement irregularity [Unknown]
  - Anxiety [Unknown]
  - Diarrhoea haemorrhagic [Unknown]
  - Depression [Unknown]
  - Muscle spasms [Unknown]
  - Micturition urgency [Unknown]
  - Drug dependence [Unknown]
